FAERS Safety Report 12544713 (Version 2)
Quarter: 2016Q3

REPORT INFORMATION
  Report Type: Spontaneous
  Country: JP (occurrence: JP)
  Receive Date: 20160711
  Receipt Date: 20160715
  Transmission Date: 20161109
  Serious: Yes (Other)
  Sender: FDA-Public Use
  Company Number: JP-009507513-1607JPN001779

PATIENT
  Age: 78 Year
  Sex: Male

DRUGS (8)
  1. BELSOMRA [Suspect]
     Active Substance: SUVOREXANT
     Indication: INSOMNIA
     Dosage: 15 MG, QD
     Route: 048
     Dates: end: 20160626
  2. BELSOMRA [Suspect]
     Active Substance: SUVOREXANT
     Dosage: 15 MG, QD
     Route: 048
     Dates: start: 20160630, end: 20160630
  3. TAKEPRON [Concomitant]
     Active Substance: LANSOPRAZOLE
     Dosage: DAILY DOSAGE UNKNOWN
     Route: 051
  4. ELNEOPA NO. 1 [Concomitant]
  5. BISOLVON [Concomitant]
     Active Substance: BROMHEXINE HYDROCHLORIDE
     Dosage: DAILY DOSAGE UNKNOWN
     Route: 051
  6. DEXMEDETOMIDINE HYDROCHLORIDE. [Concomitant]
     Active Substance: DEXMEDETOMIDINE HYDROCHLORIDE
     Dosage: 200 MICROGRAM, UNK
     Route: 051
  7. ZOSYN [Concomitant]
     Active Substance: PIPERACILLIN SODIUM\TAZOBACTAM SODIUM
     Dosage: DAILY DOSAGE UNKNOWN
     Route: 051
  8. MORPHINE [Concomitant]
     Active Substance: MORPHINE

REACTIONS (1)
  - Delirium [Unknown]

NARRATIVE: CASE EVENT DATE: 20160630
